FAERS Safety Report 6788394-3 (Version None)
Quarter: 2010Q2

REPORT INFORMATION
  Report Type: 
  Country: None (occurrence: None)
  Receive Date: 20100623
  Receipt Date: 20080228
  Transmission Date: 20101027
  Serious: No
  Sender: FDA-Public Use
  Company Number: US-PFIZER INC-2008018849

PATIENT
  Sex: Female
  Weight: 60.454 kg

DRUGS (3)
  1. AROMASIN [Suspect]
     Indication: BREAST CANCER
     Dates: start: 20070301
  2. ACTONEL [Concomitant]
  3. VITAMINS [Concomitant]

REACTIONS (2)
  - ARTHRALGIA [None]
  - INSOMNIA [None]
